FAERS Safety Report 13279743 (Version 1)
Quarter: 2017Q1

REPORT INFORMATION
  Report Type: Spontaneous
  Country: US (occurrence: US)
  Receive Date: 20170228
  Receipt Date: 20170228
  Transmission Date: 20170428
  Serious: Yes (Hospitalization, Disabling)
  Sender: FDA-Public Use
  Company Number: None

PATIENT
  Age: 37 Year
  Sex: Female
  Weight: 63 kg

DRUGS (14)
  1. VITAMIN C [Concomitant]
     Active Substance: ASCORBIC ACID
  2. MAGNESIUM GLYCINATE [Concomitant]
     Active Substance: MAGNESIUM GLYCINATE
  3. PASSION FLOWER EXTRACT [Concomitant]
     Active Substance: PASSIFLORA EDULIS FLOWER
  4. AMERICAN GINSENG [Concomitant]
  5. L-TYROSINE [Concomitant]
  6. SUBOXONE [Suspect]
     Active Substance: BUPRENORPHINE HYDROCHLORIDE\NALOXONE HYDROCHLORIDE
     Indication: DEPENDENCE
     Route: 060
     Dates: start: 20070401, end: 20170201
  7. VITAMIN B2 [Concomitant]
     Active Substance: RIBOFLAVIN
  8. GINGER ROOT [Concomitant]
     Active Substance: GINGER
  9. L-THEANINE [Concomitant]
     Active Substance: DIETARY SUPPLEMENT
  10. VITAMIN D3 [Concomitant]
     Active Substance: CHOLECALCIFEROL
  11. EFFEXOR [Concomitant]
     Active Substance: VENLAFAXINE HYDROCHLORIDE
  12. FULL SPECTRUM MINERAL CAPS [Concomitant]
  13. POTASSIUM [Concomitant]
     Active Substance: POTASSIUM
  14. ULTRA OMEGA 3 [Concomitant]

REACTIONS (4)
  - Anxiety [None]
  - Dependence [None]
  - Depression [None]
  - Withdrawal syndrome [None]

NARRATIVE: CASE EVENT DATE: 20150205
